APPROVED DRUG PRODUCT: VEKLURY
Active Ingredient: REMDESIVIR
Strength: 100MG/VIAL
Dosage Form/Route: POWDER;INTRAVENOUS
Application: N214787 | Product #001
Applicant: GILEAD SCIENCES INC
Approved: Oct 22, 2020 | RLD: Yes | RS: Yes | Type: RX

PATENTS:
Patent 11975012 | Expires: May 28, 2041
Patent 11975012 | Expires: May 28, 2041
Patent 11266681 | Expires: Jul 10, 2038
Patent 11266681 | Expires: Jul 10, 2038
Patent 11382926 | Expires: Sep 16, 2036
Patent 11382926 | Expires: Sep 16, 2036
Patent 10695361 | Expires: Sep 16, 2036
Patent 10695361 | Expires: Sep 16, 2036
Patent 11491169 | Expires: May 28, 2041
Patent 11491169 | Expires: May 28, 2041
Patent 11007208 | Expires: Sep 16, 2036
Patent 11007208 | Expires: Sep 16, 2036
Patent 11903953 | Expires: May 28, 2041
Patent 11903953 | Expires: May 28, 2041
Patent 11492353 | Expires: Dec 8, 2031
Patent 8318682 | Expires: Apr 22, 2029
Patent 9724360 | Expires: Oct 29, 2035
Patent 10065958 | Expires: Sep 16, 2031
Patent RE46762 | Expires: Apr 22, 2029
Patent 11975017 | Expires: Jul 10, 2038
Patent 8008264 | Expires: Sep 6, 2029
Patent 10675296 | Expires: Jul 10, 2038
Patent 9949994 | Expires: Oct 29, 2035
Patent 11492353*PED | Expires: Jun 8, 2032
Patent 11491169*PED | Expires: Nov 28, 2041
Patent 11903953*PED | Expires: Nov 28, 2041
Patent 11007208*PED | Expires: Mar 16, 2037
Patent 11382926*PED | Expires: Mar 16, 2037
Patent 9949994*PED | Expires: Apr 29, 2036
Patent 10675296*PED | Expires: Jan 10, 2039
Patent 8008264*PED | Expires: Mar 6, 2030
Patent 8318682*PED | Expires: Oct 22, 2029
Patent 10065958*PED | Expires: Mar 16, 2032
Patent 10695361*PED | Expires: Mar 16, 2037
Patent RE46762*PED | Expires: Oct 22, 2029
Patent 9724360*PED | Expires: Apr 29, 2036
Patent 11266681*PED | Expires: Jan 10, 2039
Patent 11975017*PED | Expires: Jan 10, 2039
Patent 11975012*PED | Expires: Nov 28, 2041

EXCLUSIVITY:
Code: M-301 | Date: Jul 13, 2026
Code: NCE | Date: Oct 22, 2025
Code: PED | Date: Apr 22, 2026
Code: PED | Date: Jan 13, 2027